FAERS Safety Report 19288983 (Version 1)
Quarter: 2021Q2

REPORT INFORMATION
  Report Type: Spontaneous
  Country: US (occurrence: US)
  Receive Date: 20210522
  Receipt Date: 20210522
  Transmission Date: 20210717
  Serious: Yes (Other)
  Sender: FDA-Public Use
  Company Number: NVSC2021US109106

PATIENT
  Age: 3 Year
  Sex: Female

DRUGS (2)
  1. CARBOPLATIN. [Suspect]
     Active Substance: CARBOPLATIN
     Indication: OPTIC GLIOMA
     Dosage: UNK
     Route: 065
     Dates: start: 202008
  2. CARBOPLATIN. [Suspect]
     Active Substance: CARBOPLATIN
     Indication: NEUROFIBROMATOSIS

REACTIONS (5)
  - Optic glioma [Unknown]
  - Neurofibromatosis [Unknown]
  - Malignant neoplasm progression [Unknown]
  - Hydrocephalus [Unknown]
  - Product use in unapproved indication [Unknown]

NARRATIVE: CASE EVENT DATE: 202008
